FAERS Safety Report 9448062 (Version 1)
Quarter: 2013Q3

REPORT INFORMATION
  Report Type: Spontaneous
  Country: US (occurrence: US)
  Receive Date: 20130808
  Receipt Date: 20130808
  Transmission Date: 20140515
  Serious: No
  Sender: FDA-Public Use
  Company Number: US-BAYER-2013-090378

PATIENT
  Age: 47 Year
  Sex: Female

DRUGS (1)
  1. BETASERON [Suspect]
     Dosage: 0.25 MG, QOD
     Route: 058

REACTIONS (4)
  - Adverse drug reaction [None]
  - Discomfort [Unknown]
  - Chills [None]
  - Feeling abnormal [None]
